FAERS Safety Report 10165942 (Version 1)
Quarter: 2014Q2

REPORT INFORMATION
  Report Type: Spontaneous
  Country: KR (occurrence: KR)
  Receive Date: 20140510
  Receipt Date: 20140510
  Transmission Date: 20141212
  Serious: Yes (Hospitalization, Other)
  Sender: FDA-Public Use
  Company Number: KR-MYLANLABS-2014S1010117

PATIENT
  Age: 7 Month
  Sex: Female

DRUGS (2)
  1. IBUPROFEN [Suspect]
     Indication: PYREXIA
     Dosage: CONVENTIONAL PEDIATRIC DOSES (MAXIMUM OF 30 MG/KG/DAY)
     Route: 065
  2. IBUPROFEN [Suspect]
     Indication: OFF LABEL USE
     Dosage: CONVENTIONAL PEDIATRIC DOSES (MAXIMUM OF 30 MG/KG/DAY)
     Route: 065

REACTIONS (2)
  - Toxic epidermal necrolysis [Recovered/Resolved]
  - Vanishing bile duct syndrome [Recovered/Resolved]
